FAERS Safety Report 11934990 (Version 2)
Quarter: 2016Q1

REPORT INFORMATION
  Report Type: Report from Study
  Country: US (occurrence: US)
  Receive Date: 20160121
  Receipt Date: 20160218
  Transmission Date: 20160526
  Serious: Yes (Death, Hospitalization, Other)
  Sender: FDA-Public Use
  Company Number: US-GILEAD-2016-0193949

PATIENT
  Age: 73 Year
  Sex: Male

DRUGS (11)
  1. LISINOPRIL. [Concomitant]
     Active Substance: LISINOPRIL
  2. PRAVASTATIN [Concomitant]
     Active Substance: PRAVASTATIN\PRAVASTATIN SODIUM
  3. AMBRISENTAN [Suspect]
     Active Substance: AMBRISENTAN
     Indication: PULMONARY ARTERIAL HYPERTENSION
     Dosage: 10 MG, QD
     Route: 065
     Dates: start: 20131016, end: 20160116
  4. LASIX [Concomitant]
     Active Substance: FUROSEMIDE
  5. VITAMIN D                          /00107901/ [Concomitant]
     Active Substance: ERGOCALCIFEROL
  6. VITAMIN B12 [Concomitant]
     Active Substance: CYANOCOBALAMIN
  7. METFORMIN [Concomitant]
     Active Substance: METFORMIN HYDROCHLORIDE
  8. LEVOTHYROXINE. [Concomitant]
     Active Substance: LEVOTHYROXINE
  9. FLAXSEED [Concomitant]
     Active Substance: FLAX SEED
  10. HYDROCODONE [Concomitant]
     Active Substance: HYDROCODONE
  11. POTASSIUM [Concomitant]
     Active Substance: POTASSIUM

REACTIONS (3)
  - Right ventricular failure [Fatal]
  - Pulmonary arterial hypertension [Fatal]
  - Chronic obstructive pulmonary disease [Fatal]
